FAERS Safety Report 9313868 (Version 1)
Quarter: 2013Q2

REPORT INFORMATION
  Report Type: Spontaneous
  Country: US (occurrence: US)
  Receive Date: 20130529
  Receipt Date: 20130529
  Transmission Date: 20140414
  Serious: No
  Sender: FDA-Public Use
  Company Number: US-BIOGENIDEC-2013BI047261

PATIENT
  Sex: Female

DRUGS (3)
  1. TYSABRI [Suspect]
     Indication: MULTIPLE SCLEROSIS
     Route: 042
     Dates: start: 20081001
  2. MUSCLE RELAXANTS [Concomitant]
  3. FAMPRIDINE [Concomitant]
     Route: 048

REACTIONS (1)
  - Multiple sclerosis relapse [Unknown]
